FAERS Safety Report 5240911-0 (Version None)
Quarter: 2007Q1

REPORT INFORMATION
  Report Type: 
  Country: None (occurrence: None)
  Receive Date: 20061208
  Receipt Date: 20050809
  Transmission Date: 20070707
  Serious: Yes (Other)
  Sender: FDA-Public Use
  Company Number: 2005UW11839

PATIENT
  Age: 59 Year
  Sex: Male
  Weight: 81.646 kg

DRUGS (6)
  1. CRESTOR [Suspect]
     Indication: BLOOD CHOLESTEROL INCREASED
     Dosage: 10 MG PO
     Route: 048
     Dates: start: 20040101, end: 20050805
  2. ZOLOFT [Concomitant]
  3. RELAFEN [Concomitant]
  4. VALIUM [Concomitant]
  5. PERCODAN [Concomitant]
  6. SYNTHROID [Concomitant]

REACTIONS (4)
  - ASTHENIA [None]
  - GAIT DISTURBANCE [None]
  - MYALGIA [None]
  - WEIGHT DECREASED [None]
